FAERS Safety Report 20702875 (Version 2)
Quarter: 2022Q2

REPORT INFORMATION
  Report Type: Spontaneous
  Country: JP (occurrence: JP)
  Receive Date: 20220412
  Receipt Date: 20220426
  Transmission Date: 20220721
  Serious: Yes (Hospitalization)
  Sender: FDA-Public Use
  Company Number: JP-MTPC-MTPC2022-0008829AA

PATIENT
  Age: 80 Year
  Sex: Male

DRUGS (11)
  1. CANAGLIFLOZIN [Suspect]
     Active Substance: CANAGLIFLOZIN
     Indication: Product used for unknown indication
     Dosage: 100 MILLIGRAM, QD
     Route: 048
  2. CLOPIDOGREL BISULFATE [Concomitant]
     Active Substance: CLOPIDOGREL BISULFATE
     Dosage: 75 MILLIGRAM, QD
     Route: 048
  3. AMLODIPINE BESYLATE [Concomitant]
     Active Substance: AMLODIPINE BESYLATE
     Dosage: 2.5 MILLIGRAM, QD
     Route: 048
  4. PIOGLITAZONE HYDROCHLORIDE [Concomitant]
     Active Substance: PIOGLITAZONE HYDROCHLORIDE
     Dosage: 3 MILLIGRAM, QD
     Route: 048
  5. METFORMIN HYDROCHLORIDE [Concomitant]
     Active Substance: METFORMIN HYDROCHLORIDE
     Dosage: 50 MILLIGRAM, QD
     Route: 048
  6. INSULIN LISPRO [Concomitant]
     Active Substance: INSULIN LISPRO
     Dosage: MORNING:10UNIT, NOON:7UNIT, EVENING:20UNIT, TID
     Route: 051
  7. NITROGLYCERIN [Concomitant]
     Active Substance: NITROGLYCERIN
     Dosage: 0.5GAMMA
     Route: 041
  8. DEXTROSE [Concomitant]
     Active Substance: DEXTROSE
     Dosage: UNK
     Route: 051
  9. POTASSIUM ASPARTATE [Concomitant]
     Active Substance: POTASSIUM ASPARTATE
     Dosage: 45 MILLIEQUIVALENT, QD
     Route: 051
  10. HUMULIN R [Concomitant]
     Active Substance: INSULIN HUMAN
     Dosage: 100 INTERNATIONAL UNIT, QD
     Route: 041
  11. Corona vaccine [Concomitant]
     Route: 051

REACTIONS (5)
  - Cardiac failure acute [Unknown]
  - Rhabdomyolysis [Unknown]
  - Hypernatraemia [Unknown]
  - Diabetic ketoacidosis [Unknown]
  - Dehydration [Unknown]
